FAERS Safety Report 17877254 (Version 2)
Quarter: 2020Q3

REPORT INFORMATION
  Report Type: Spontaneous
  Country: US (occurrence: US)
  Receive Date: 20200609
  Receipt Date: 20200710
  Transmission Date: 20201103
  Serious: Yes (Hospitalization)
  Sender: FDA-Public Use
  Company Number: US-ACTELION-A-US2020-205946

PATIENT
  Age: 68 Year
  Sex: Male
  Weight: 58.5 kg

DRUGS (3)
  1. UPTRAVI [Suspect]
     Active Substance: SELEXIPAG
     Indication: PULMONARY ARTERIAL HYPERTENSION
     Dosage: 200 MCG, BID
     Route: 048
  2. REVATIO [Concomitant]
     Active Substance: SILDENAFIL CITRATE
  3. COUMADIN [Concomitant]
     Active Substance: WARFARIN SODIUM

REACTIONS (4)
  - Hospitalisation [Unknown]
  - Diarrhoea [Unknown]
  - Adverse event [Unknown]
  - Headache [Unknown]

NARRATIVE: CASE EVENT DATE: 20200528
